FAERS Safety Report 23249794 (Version 1)
Quarter: 2023Q4

REPORT INFORMATION
  Report Type: Spontaneous
  Country: BE (occurrence: BE)
  Receive Date: 20231201
  Receipt Date: 20231201
  Transmission Date: 20240110
  Serious: Yes (Disabling)
  Sender: FDA-Public Use
  Company Number: BE-FAMHP-DHH-N2023-121197

PATIENT
  Age: 47 Year
  Sex: Male
  Weight: 78 kg

DRUGS (1)
  1. ARIPIPRAZOLE [Suspect]
     Active Substance: ARIPIPRAZOLE
     Indication: Product used for unknown indication
     Dosage: 5 MILLIGRAM
     Route: 048
     Dates: start: 20000101, end: 20231114

REACTIONS (5)
  - Sexually inappropriate behaviour [Recovering/Resolving]
  - Feeling abnormal [Recovering/Resolving]
  - Judgement impaired [Recovering/Resolving]
  - Social problem [Recovering/Resolving]
  - Excessive masturbation [Recovering/Resolving]

NARRATIVE: CASE EVENT DATE: 20000101
